FAERS Safety Report 13680799 (Version 1)
Quarter: 2017Q2

REPORT INFORMATION
  Report Type: Spontaneous
  Country: US (occurrence: US)
  Receive Date: 20170622
  Receipt Date: 20170622
  Transmission Date: 20170830
  Serious: Yes (Hospitalization)
  Sender: FDA-Public Use
  Company Number: None

PATIENT
  Age: 72 Year
  Sex: Female
  Weight: 128.4 kg

DRUGS (3)
  1. MEMANTINE HYDROCHLORIDE. [Suspect]
     Active Substance: MEMANTINE HYDROCHLORIDE
     Dates: end: 20170613
  2. DEXAMETHASONE. [Concomitant]
     Active Substance: DEXAMETHASONE
  3. ZOSYN [Concomitant]
     Active Substance: PIPERACILLIN SODIUM\TAZOBACTAM SODIUM

REACTIONS (17)
  - Leukopenia [None]
  - Arthralgia [None]
  - Hyporesponsive to stimuli [None]
  - Bundle branch block [None]
  - Electrocardiogram ST-T change [None]
  - White blood cell count decreased [None]
  - Thrombocytopenia [None]
  - Mental status changes [None]
  - Sinus tachycardia [None]
  - Fall [None]
  - Sepsis [None]
  - Troponin increased [None]
  - Platelet count decreased [None]
  - Seizure [None]
  - Unresponsive to stimuli [None]
  - Herpes simplex encephalitis [None]
  - Injury [None]

NARRATIVE: CASE EVENT DATE: 20170614
